FAERS Safety Report 15986590 (Version 1)
Quarter: 2019Q1

REPORT INFORMATION
  Report Type: Spontaneous
  Country: SA (occurrence: SA)
  Receive Date: 20190220
  Receipt Date: 20190220
  Transmission Date: 20190418
  Serious: Yes (Life-Threatening, Hospitalization)
  Sender: FDA-Public Use
  Company Number: None

PATIENT
  Age: 57 Year
  Sex: Female

DRUGS (1)
  1. CARFLIZOMIB [Suspect]
     Active Substance: CARFILZOMIB

REACTIONS (3)
  - Sepsis [None]
  - Dialysis [None]
  - Blood creatinine increased [None]
